FAERS Safety Report 4766946-X (Version None)
Quarter: 2005Q3

REPORT INFORMATION
  Report Type: 
  Country: None (occurrence: None)
  Receive Date: 20050913
  Receipt Date: 20050901
  Transmission Date: 20060218
  Serious: Yes (Other)
  Sender: FDA-Public Use
  Company Number: TH-BOEHRINGER INGELHEIM PHARMACEUTICALS, INC.-2005-DE-03559GD

PATIENT

DRUGS (1)
  1. TRIOMUNE [Suspect]
     Indication: HIV INFECTION
     Route: 048

REACTIONS (9)
  - AIDS RELATED COMPLICATION [None]
  - BACTERIAL SEPSIS [None]
  - DRUG INEFFECTIVE [None]
  - ENCEPHALITIS HERPES [None]
  - MENINGITIS CRYPTOCOCCAL [None]
  - MYCOBACTERIAL INFECTION [None]
  - PYREXIA [None]
  - RASH [None]
  - TUBERCULOSIS [None]
